FAERS Safety Report 7807601-9 (Version None)
Quarter: 2011Q4

REPORT INFORMATION
  Report Type: 
  Country: None (occurrence: None)
  Receive Date: 20111011
  Receipt Date: 20111006
  Transmission Date: 20120403
  Serious: Yes (Disabling)
  Sender: FDA-Public Use
  Company Number: IT-CELGENEUS-083-21880-11100879

PATIENT
  Sex: Female

DRUGS (1)
  1. REVLIMID [Suspect]
     Dosage: 10 MILLIGRAM
     Route: 048
     Dates: start: 20091215, end: 20110501

REACTIONS (1)
  - REFRACTORY ANAEMIA WITH AN EXCESS OF BLASTS [None]
